FAERS Safety Report 12372471 (Version 1)
Quarter: 2016Q2

REPORT INFORMATION
  Report Type: Spontaneous
  Country: FR (occurrence: FR)
  Receive Date: 20160516
  Receipt Date: 20160516
  Transmission Date: 20160815
  Serious: Yes (Disabling, Congenital Anomaly)
  Sender: FDA-Public Use
  Company Number: FR-ABBVIE-16P-056-1628830-00

PATIENT
  Sex: Male

DRUGS (1)
  1. DEPAKINE CHRONO [Suspect]
     Active Substance: VALPROATE SODIUM
     Indication: MATERNAL EXPOSURE TIMING UNSPECIFIED
     Route: 064
     Dates: end: 20000112

REACTIONS (8)
  - Strabismus [Not Recovered/Not Resolved]
  - Urethral meatus stenosis [Recovered/Resolved with Sequelae]
  - Foetal exposure during pregnancy [Unknown]
  - Abnormal behaviour [Not Recovered/Not Resolved]
  - Testicular atrophy [Unknown]
  - Intellectual disability [Not Recovered/Not Resolved]
  - Cryptorchism [Recovered/Resolved with Sequelae]
  - Hypospadias [Recovered/Resolved with Sequelae]

NARRATIVE: CASE EVENT DATE: 20000112
